FAERS Safety Report 13292072 (Version 2)
Quarter: 2017Q1

REPORT INFORMATION
  Report Type: Spontaneous
  Country: JP (occurrence: JP)
  Receive Date: 20170303
  Receipt Date: 20170313
  Transmission Date: 20170428
  Serious: Yes (Life-Threatening, Hospitalization, Other)
  Sender: FDA-Public Use
  Company Number: JP-009507513-1701JPN002725J

PATIENT
  Age: 47 Year
  Sex: Male
  Weight: 48 kg

DRUGS (9)
  1. TEMODAL [Suspect]
     Active Substance: TEMOZOLOMIDE
     Dosage: 300 MG, UNK
     Route: 048
     Dates: start: 20110307, end: 20150811
  2. E KEPPRA [Concomitant]
     Active Substance: LEVETIRACETAM
     Dosage: 5 DF, UNK
     Route: 048
     Dates: start: 201011
  3. MAGNESIUM OXIDE. [Concomitant]
     Active Substance: MAGNESIUM OXIDE
     Dosage: 660 MG, UNK
     Route: 048
     Dates: start: 201503
  4. DEPAKENE [Concomitant]
     Active Substance: VALPROIC ACID
     Indication: BIPOLAR I DISORDER
     Dosage: UNK
     Route: 048
     Dates: start: 201001, end: 201701
  5. AVASTIN [Concomitant]
     Active Substance: BEVACIZUMAB
     Dosage: 590 MG, UNK
     Route: 051
     Dates: start: 20140905
  6. NASEA OD [Concomitant]
     Active Substance: RAMOSETRON HYDROCHLORIDE
     Dosage: 0.1 MG, UNK
     Route: 048
     Dates: start: 20111021, end: 20150811
  7. TEMODAL [Suspect]
     Active Substance: TEMOZOLOMIDE
     Indication: OLIGODENDROGLIOMA
     Dosage: 110 MG, BID
     Route: 048
     Dates: start: 20101220, end: 20110206
  8. TEMODAL [Suspect]
     Active Substance: TEMOZOLOMIDE
     Indication: OLIGODENDROGLIOMA
     Dosage: 20 MG, UNK
     Route: 048
     Dates: start: 20110307, end: 20150811
  9. RINDERON V [Concomitant]
     Active Substance: BETAMETHASONE VALERATE
     Dosage: 0.5 MG, UNK
     Route: 048
     Dates: start: 201409

REACTIONS (3)
  - Myelodysplastic syndrome [Not Recovered/Not Resolved]
  - Influenza [Unknown]
  - Seizure [Recovering/Resolving]

NARRATIVE: CASE EVENT DATE: 20150811
